FAERS Safety Report 25377149 (Version 1)
Quarter: 2025Q2

REPORT INFORMATION
  Report Type: Spontaneous
  Country: US (occurrence: US)
  Receive Date: 20250530
  Receipt Date: 20250530
  Transmission Date: 20250716
  Serious: Yes (Other)
  Sender: NOVO NORDISK
  Company Number: US-NOVOPROD-1440249

PATIENT
  Age: 74 Year
  Sex: Male

DRUGS (1)
  1. OZEMPIC [Suspect]
     Active Substance: SEMAGLUTIDE
     Indication: Cardiac disorder
     Dosage: 0.25 MG, QW
     Route: 058
     Dates: start: 2024

REACTIONS (4)
  - Cardiovascular disorder [Recovered/Resolved]
  - Product use in unapproved indication [Unknown]
  - Inappropriate schedule of product administration [Unknown]
  - Product communication issue [Unknown]

NARRATIVE: CASE EVENT DATE: 20250429
